FAERS Safety Report 4709064-9 (Version None)
Quarter: 2005Q3

REPORT INFORMATION
  Report Type: 
  Country: None (occurrence: None)
  Receive Date: 20050707
  Receipt Date: 20050628
  Transmission Date: 20060218
  Serious: Yes (Other)
  Sender: FDA-Public Use
  Company Number: 215162

PATIENT
  Age: 38 Year
  Sex: Female
  Weight: 98 kg

DRUGS (7)
  1. XOLAIR [Suspect]
     Indication: ASTHMA
     Dosage: 150 MG, Q4W, SUBCUTANEOUS
     Route: 058
     Dates: start: 20050101
  2. ELIDEL [Concomitant]
  3. ALBUTEROL [Concomitant]
  4. ADVAIR                (SALMETEROL XINAFOATE, FLUTICASONE PROPIONATE) [Concomitant]
  5. PROTOPIC [Concomitant]
  6. SINGULAIR [Concomitant]
  7. ALLEGRA [Concomitant]

REACTIONS (2)
  - GALACTORRHOEA [None]
  - PROLACTINOMA [None]
